FAERS Safety Report 18035629 (Version 1)
Quarter: 2020Q3

REPORT INFORMATION
  Report Type: Spontaneous
  Country: US (occurrence: US)
  Receive Date: 20200716
  Receipt Date: 20200716
  Transmission Date: 20201103
  Serious: No
  Sender: FDA-Public Use
  Company Number: None

PATIENT
  Age: 55 Year
  Sex: Male

DRUGS (1)
  1. GLIPIZIDE (GLIPIZIDE 5MG TAB) [Suspect]
     Active Substance: GLIPIZIDE
     Indication: DIABETES MELLITUS
     Route: 048
     Dates: start: 20181029, end: 20190728

REACTIONS (4)
  - Confusional state [None]
  - Dizziness [None]
  - Syncope [None]
  - Hypoglycaemia [None]

NARRATIVE: CASE EVENT DATE: 20190807
